FAERS Safety Report 12975300 (Version 1)
Quarter: 2016Q4

REPORT INFORMATION
  Report Type: Spontaneous
  Country: US (occurrence: US)
  Receive Date: 20161123
  Receipt Date: 20161123
  Transmission Date: 20170207
  Serious: Yes (Death, Other)
  Sender: FDA-Public Use
  Company Number: None

PATIENT
  Age: 38 Year
  Sex: Male
  Weight: 80.1 kg

DRUGS (4)
  1. PROPYTHLTHIOURACIL [Concomitant]
  2. WARFARIN [Suspect]
     Active Substance: WARFARIN
     Indication: HYPERTHYROIDISM
     Route: 048
     Dates: start: 19991004, end: 19991220
  3. FUROSEMIDE. [Concomitant]
     Active Substance: FUROSEMIDE
  4. BETAPACE [Concomitant]
     Active Substance: SOTALOL HYDROCHLORIDE

REACTIONS (3)
  - Counterfeit drug administered [None]
  - Overdose [None]
  - Treatment noncompliance [None]

NARRATIVE: CASE EVENT DATE: 19991120
